FAERS Safety Report 8901778 (Version 1)
Quarter: 2012Q4

REPORT INFORMATION
  Report Type: Spontaneous
  Country: US (occurrence: None)
  Receive Date: 20121105
  Receipt Date: 20121105
  Transmission Date: 20130627
  Serious: Yes (Other)
  Sender: FDA-Public Use
  Company Number: US-BANPHARM-20120274

PATIENT
  Age: 60 Year
  Sex: Female
  Weight: 127 kg

DRUGS (2)
  1. ALEVE LIQUID GELS 220 MG [Suspect]
     Indication: PAIN
     Dosage: 1 capsule twice daily Oral
     Route: 048
     Dates: start: 2012
  2. CYMBALTA [Concomitant]

REACTIONS (1)
  - White blood cell count decreased [None]
